FAERS Safety Report 18716043 (Version 1)
Quarter: 2021Q1

REPORT INFORMATION
  Report Type: Spontaneous
  Country: US (occurrence: US)
  Receive Date: 20210108
  Receipt Date: 20210108
  Transmission Date: 20210419
  Serious: No
  Sender: FDA-Public Use
  Company Number: NVSC2021US002655

PATIENT
  Age: 57 Year
  Sex: Female
  Weight: 71.67 kg

DRUGS (1)
  1. XIIDRA [Suspect]
     Active Substance: LIFITEGRAST
     Indication: DRY EYE
     Dosage: 1 DRP, BID (GTT)
     Route: 047
     Dates: start: 20201014, end: 20210102

REACTIONS (1)
  - Blepharospasm [Unknown]

NARRATIVE: CASE EVENT DATE: 20201014
